FAERS Safety Report 13541711 (Version 2)
Quarter: 2021Q1

REPORT INFORMATION
  Report Type: Spontaneous
  Country: US (occurrence: US)
  Receive Date: 20170512
  Receipt Date: 20210330
  Transmission Date: 20210419
  Serious: No
  Sender: FDA-Public Use
  Company Number: US-ELI_LILLY_AND_COMPANY-US201705003727

PATIENT
  Sex: Female

DRUGS (3)
  1. HUMATROPE [Suspect]
     Active Substance: SOMATROPIN
     Indication: HYPOTHALAMO-PITUITARY DISORDER
     Dosage: 0.9 MG, DAILY
     Route: 058
  2. HUMATROPE [Suspect]
     Active Substance: SOMATROPIN
     Dosage: 0.9 MG, DAILY
     Route: 058
  3. HUMATROPE [Suspect]
     Active Substance: SOMATROPIN
     Dosage: 1 MG, 5 TIMES A WEEK
     Route: 058

REACTIONS (2)
  - Emotional disorder [Unknown]
  - Crying [Unknown]
